FAERS Safety Report 7045457-5 (Version None)
Quarter: 2010Q4

REPORT INFORMATION
  Report Type: 
  Country: None (occurrence: None)
  Receive Date: 20101014
  Receipt Date: 20100913
  Transmission Date: 20110411
  Serious: No
  Sender: FDA-Public Use
  Company Number: US-ALLERGAN-1011835US

PATIENT
  Sex: Female

DRUGS (2)
  1. LATISSE [Suspect]
     Indication: GROWTH OF EYELASHES
     Dosage: UNK
  2. EYELASH EXTENSION [Concomitant]

REACTIONS (1)
  - MADAROSIS [None]
